FAERS Safety Report 5403443-2 (Version None)
Quarter: 2007Q3

REPORT INFORMATION
  Report Type: 
  Country: None (occurrence: None)
  Receive Date: 20070730
  Receipt Date: 20070712
  Transmission Date: 20080115
  Serious: Yes (Hospitalization)
  Sender: FDA-Public Use
  Company Number: 2006EU002942

PATIENT
  Sex: Female
  Weight: 1.4 kg

DRUGS (8)
  1. PROGRAF [Suspect]
     Indication: HEART TRANSPLANT
  2. PROPRANOLOL [Concomitant]
  3. PREDNISOLONE [Concomitant]
  4. CALTRATE (VITAMIN D NOS, CALCIUM) [Concomitant]
  5. PRAVASTATIN [Concomitant]
  6. LORAZEPAM [Concomitant]
  7. ASPIRIN [Concomitant]
  8. OMEPRAZOLE [Concomitant]

REACTIONS (6)
  - ANOXIA [None]
  - CAESAREAN SECTION [None]
  - CARDIAC DISORDER [None]
  - DRUG EXPOSURE DURING PREGNANCY [None]
  - NEONATAL RESPIRATORY DISTRESS SYNDROME [None]
  - PREMATURE BABY [None]
